FAERS Safety Report 5794898-2 (Version None)
Quarter: 2008Q2

REPORT INFORMATION
  Report Type: 
  Country: None (occurrence: None)
  Receive Date: 20080630
  Receipt Date: 20080623
  Transmission Date: 20081010
  Serious: Yes (Death)
  Sender: FDA-Public Use
  Company Number: AT-ABBOTT-08P-009-0441686-00

PATIENT
  Age: 57 Year
  Sex: Female
  Weight: 59.5 kg

DRUGS (13)
  1. ZEMPLAR [Suspect]
     Indication: HYPERPARATHYROIDISM SECONDARY
     Route: 042
     Dates: start: 20070306, end: 20070406
  2. ZEMPLAR [Suspect]
     Route: 042
     Dates: start: 20070406, end: 20070506
  3. INSULIN [Concomitant]
     Indication: DIABETES MELLITUS
     Dosage: 12 PER DAY IV
     Route: 042
  4. METHYLPREDNISOLONE [Concomitant]
     Indication: DRUG USE FOR UNKNOWN INDICATION
     Dosage: 4 MG
     Route: 048
     Dates: start: 20070615
  5. THEOPHYLLINE [Concomitant]
     Indication: DRUG USE FOR UNKNOWN INDICATION
     Route: 048
     Dates: start: 20070615
  6. PANTOPRAZOLE SODIUM [Concomitant]
     Indication: DRUG USE FOR UNKNOWN INDICATION
     Route: 048
  7. VENLAFAXINE HCL [Concomitant]
     Indication: DEPRESSION
     Dosage: 75 MG
     Route: 048
     Dates: start: 20070616
  8. TRAZODONE HYDROCHLORIDE [Concomitant]
     Indication: DEPRESSION
     Dosage: 150 MG
     Route: 048
     Dates: start: 20070615
  9. SIMVASTATIN [Concomitant]
     Indication: HYPERLIPIDAEMIA
     Dosage: 40 MG
     Route: 048
  10. DIMETINDENE MALEATE [Concomitant]
     Indication: PRURITUS
     Route: 048
  11. CALCIUM CARBONATE [Concomitant]
     Indication: HYPERPARATHYROIDISM SECONDARY
     Route: 048
     Dates: start: 20070201
  12. DREISAVIT [Concomitant]
     Indication: HYPOVITAMINOSIS
     Route: 048
  13. BISOPROLOL FUMARATE [Concomitant]
     Indication: HYPERTENSION
     Route: 048

REACTIONS (2)
  - CARDIAC ARREST [None]
  - MYOCARDIAL INFARCTION [None]
